FAERS Safety Report 12766340 (Version 1)
Quarter: 2016Q3

REPORT INFORMATION
  Report Type: Spontaneous
  Country: US (occurrence: US)
  Receive Date: 20160915
  Receipt Date: 20160915
  Transmission Date: 20161109
  Serious: No
  Sender: FDA-Public Use
  Company Number: None

PATIENT
  Age: 56 Year
  Sex: Male

DRUGS (1)
  1. TALTZ [Suspect]
     Active Substance: IXEKIZUMAB
     Indication: PSORIASIS
     Dosage: TALTZ 80MG - EVERY 2 WEEKS - SUBCUTANEOUSLY
     Route: 058
     Dates: start: 20160527

REACTIONS (1)
  - Fungal infection [None]

NARRATIVE: CASE EVENT DATE: 20160620
